FAERS Safety Report 24817432 (Version 1)
Quarter: 2025Q1

REPORT INFORMATION
  Report Type: Spontaneous
  Country: CA (occurrence: CA)
  Receive Date: 20250108
  Receipt Date: 20250108
  Transmission Date: 20250408
  Serious: Yes (Life-Threatening, Hospitalization, Other)
  Sender: JOHNSON AND JOHNSON
  Company Number: CA-KENVUE-20241208616

PATIENT
  Age: 21 Year
  Sex: Male

DRUGS (1)
  1. ACETAMINOPHEN [Suspect]
     Active Substance: ACETAMINOPHEN
     Indication: Product used for unknown indication
     Route: 065

REACTIONS (6)
  - Toxicity to various agents [Recovered/Resolved]
  - Hepatic failure [Recovered/Resolved]
  - Hepatic encephalopathy [Recovered/Resolved]
  - Brain oedema [Recovered/Resolved]
  - Agitation [Recovered/Resolved]
  - Mydriasis [Recovered/Resolved]
